FAERS Safety Report 4510518-9 (Version None)
Quarter: 2004Q4

REPORT INFORMATION
  Report Type: 
  Country: None (occurrence: None)
  Receive Date: 20041122
  Receipt Date: 20041117
  Transmission Date: 20050328
  Serious: Yes (Hospitalization)
  Sender: FDA-Public Use
  Company Number: TPA2004A01434

PATIENT
  Sex: Female

DRUGS (1)
  1. ACTOS [Suspect]
     Dosage: 30 MG, 1 IN 1 D, PER ORAL
     Route: 048

REACTIONS (3)
  - OEDEMA [None]
  - PLEURAL EFFUSION [None]
  - RIGHT VENTRICULAR FAILURE [None]
